FAERS Safety Report 19044306 (Version 3)
Quarter: 2021Q4

REPORT INFORMATION
  Report Type: Report from Study
  Country: US (occurrence: None)
  Receive Date: 20210323
  Receipt Date: 20211111
  Transmission Date: 20220303
  Serious: Yes (Hospitalization)
  Sender: FDA-Public Use
  Company Number: US-ROCHE-2789566

PATIENT
  Age: 75 Year
  Sex: Female
  Weight: 73.8 kg

DRUGS (5)
  1. ATEZOLIZUMAB [Suspect]
     Active Substance: ATEZOLIZUMAB
     Indication: Colon cancer
     Route: 042
     Dates: start: 20200915
  2. OXALIPLATIN [Suspect]
     Active Substance: OXALIPLATIN
     Indication: Colon cancer
     Route: 042
     Dates: start: 20200915
  3. LEUCOVORIN CALCIUM [Suspect]
     Active Substance: LEUCOVORIN CALCIUM
     Indication: Colon cancer
     Route: 042
     Dates: start: 20200915
  4. LASIX [Suspect]
     Active Substance: FUROSEMIDE
     Indication: Product used for unknown indication
     Route: 065
  5. LISINOPRIL [Suspect]
     Active Substance: LISINOPRIL
     Indication: Product used for unknown indication
     Route: 065

REACTIONS (6)
  - Hypertension [Recovered/Resolved]
  - Wheezing [Recovered/Resolved]
  - Cardiac failure [Recovered/Resolved with Sequelae]
  - Infusion related reaction [Recovered/Resolved]
  - Myocardial infarction [Recovered/Resolved]
  - Troponin I increased [Recovered/Resolved]

NARRATIVE: CASE EVENT DATE: 20200915
